FAERS Safety Report 8163397-5 (Version None)
Quarter: 2012Q1

REPORT INFORMATION
  Report Type: 
  Country: None (occurrence: None)
  Receive Date: 20120221
  Receipt Date: 20120206
  Transmission Date: 20120608
  Serious: Yes (Death, Hospitalization)
  Sender: FDA-Public Use
  Company Number: 2012PL000031

PATIENT
  Age: 38 Year
  Sex: Female

DRUGS (4)
  1. GANCICLOVIR [Concomitant]
  2. VALGANCICLOVIR [Concomitant]
  3. CORTICOSTEROIDS [Concomitant]
  4. AZATHIOPRINE [Suspect]
     Indication: CROHN'S DISEASE

REACTIONS (6)
  - NECROSIS [None]
  - GASTRIC ULCER PERFORATION [None]
  - HISTIOCYTOSIS HAEMATOPHAGIC [None]
  - PROCEDURAL COMPLICATION [None]
  - HYPERTRIGLYCERIDAEMIA [None]
  - CYTOMEGALOVIRUS INFECTION [None]
